FAERS Safety Report 10034915 (Version 2)
Quarter: 2014Q2

REPORT INFORMATION
  Report Type: Spontaneous
  Country: US (occurrence: US)
  Receive Date: 20140325
  Receipt Date: 20140424
  Transmission Date: 20141212
  Serious: No
  Sender: FDA-Public Use
  Company Number: US-009507513-1403USA004490

PATIENT
  Age: 84 Year
  Sex: Female
  Weight: 62.13 kg

DRUGS (8)
  1. OXYTROL FOR WOMEN [Suspect]
     Indication: URINARY INCONTINENCE
     Dosage: UNK, Q4D
     Route: 062
     Dates: start: 20140219
  2. OXYTROL FOR WOMEN [Suspect]
     Indication: FAECAL INCONTINENCE
  3. ASPIRIN [Concomitant]
     Indication: ANTICOAGULANT THERAPY
     Dosage: UNK, UNKNOWN
  4. METOPROLOL [Concomitant]
     Indication: BLOOD PRESSURE
     Dosage: UNK, UNKNOWN
  5. CALCIUM (UNSPECIFIED) [Concomitant]
     Indication: OSTEOPOROSIS PROPHYLAXIS
     Dosage: UNK, UNKNOWN
  6. ACYCLOVIR [Concomitant]
     Indication: PRODUCT USED FOR UNKNOWN INDICATION
     Dosage: UNK, UNKNOWN
  7. VITAMIN D (UNSPECIFIED) [Concomitant]
     Indication: OSTEOPOROSIS PROPHYLAXIS
     Dosage: UNK, UNKNOWN
  8. CIPRO (CIPROFLOXACIN HYDROCHLORIDE) [Concomitant]
     Indication: INFECTION
     Dosage: UNK, UNKNOWN

REACTIONS (1)
  - Drug administered at inappropriate site [Unknown]
